FAERS Safety Report 8064465-9 (Version None)
Quarter: 2012Q1

REPORT INFORMATION
  Report Type: 
  Country: None (occurrence: None)
  Receive Date: 20120123
  Receipt Date: 20120112
  Transmission Date: 20120608
  Serious: Yes (Hospitalization)
  Sender: FDA-Public Use
  Company Number: PHHY2012SE002859

PATIENT
  Sex: Male

DRUGS (4)
  1. TREO [Concomitant]
     Dosage: UNK UKN, UNK
  2. ENALAPRIL MALEATE [Concomitant]
     Dosage: UNK UKN, UNK
  3. TEGRETOL [Suspect]
     Dosage: 800 MG, DAILY
     Route: 048
     Dates: start: 20110222, end: 20110303
  4. TEGRETOL [Suspect]
     Indication: EPILEPSY
     Dosage: 400 MG, DAILY
     Route: 048
     Dates: start: 20110112

REACTIONS (4)
  - URINARY RETENTION [None]
  - PYELONEPHRITIS [None]
  - DYSURIA [None]
  - RESIDUAL URINE VOLUME INCREASED [None]
